FAERS Safety Report 7570128-6 (Version None)
Quarter: 2011Q2

REPORT INFORMATION
  Report Type: 
  Country: None (occurrence: None)
  Receive Date: 20110622
  Receipt Date: 20110622
  Transmission Date: 20111010
  Serious: Yes (Life-Threatening, Hospitalization)
  Sender: FDA-Public Use
  Company Number: None

PATIENT
  Sex: Female
  Weight: 55.3388 kg

DRUGS (2)
  1. PROPOXYPHENE HCL AND ACETAMINOPHEN [Suspect]
     Indication: SPINAL COLUMN STENOSIS
     Dosage: 1 TABLET 3X DAY
  2. PROPOXYPHENE HCL AND ACETAMINOPHEN [Suspect]
     Indication: EXOSTOSIS
     Dosage: 1 TABLET 3X DAY

REACTIONS (2)
  - MYOCARDIAL INFARCTION [None]
  - QUALITY OF LIFE DECREASED [None]
